FAERS Safety Report 10230234 (Version 1)
Quarter: 2014Q2

REPORT INFORMATION
  Report Type: Spontaneous
  Country: US (occurrence: US)
  Receive Date: 20140611
  Receipt Date: 20140611
  Transmission Date: 20141212
  Serious: Yes (Other)
  Sender: FDA-Public Use
  Company Number: US-PFIZER INC-2014155633

PATIENT
  Age: 34 Year
  Sex: Female

DRUGS (1)
  1. VENLAFAXINE HCL [Suspect]
     Indication: BIPOLAR DISORDER
     Dosage: UNK

REACTIONS (4)
  - Off label use [Unknown]
  - Mania [Unknown]
  - Narcolepsy [Unknown]
  - Sedation [Unknown]
